FAERS Safety Report 16749456 (Version 1)
Quarter: 2019Q3

REPORT INFORMATION
  Report Type: Spontaneous
  Country: GB (occurrence: GB)
  Receive Date: 20190828
  Receipt Date: 20190828
  Transmission Date: 20191005
  Serious: Yes (Other)
  Sender: FDA-Public Use
  Company Number: GB-ACCORD-152939

PATIENT
  Age: 80 Year
  Sex: Male
  Weight: 84 kg

DRUGS (12)
  1. LACTULOSE. [Concomitant]
     Active Substance: LACTULOSE
     Dates: start: 20181017, end: 20190807
  2. RAMIPRIL. [Concomitant]
     Active Substance: RAMIPRIL
     Dates: start: 20181017
  3. ATORVASTATIN [Concomitant]
     Active Substance: ATORVASTATIN
     Dosage: NIGHT
     Dates: start: 20181017
  4. CHLORAMPHENICOL [Concomitant]
     Active Substance: CHLORAMPHENICOL
     Dosage: APPLY
     Dates: start: 20190606, end: 20190611
  5. APIXABAN [Concomitant]
     Active Substance: APIXABAN
     Dates: start: 20190304
  6. BISOPROLOL [Concomitant]
     Active Substance: BISOPROLOL
     Dosage: TAKE ONE DAILY IN ADDITION TO USUAL 5MG TABLET (TOTAL DAILY DOSE 10MG)
     Dates: start: 20190122
  7. FUROSEMIDE. [Concomitant]
     Active Substance: FUROSEMIDE
     Dosage: MORNING
     Dates: start: 20190807
  8. SPIRONOLACTONE. [Concomitant]
     Active Substance: SPIRONOLACTONE
     Dates: start: 20190304, end: 20190807
  9. SYSTANE (HYPROMELLOSE 2910 (4000 MPA.S)) [Concomitant]
     Active Substance: HYPROMELLOSE 2910 (4000 MPA.S)
     Dosage: ONE TO TWO DROPS TO RIGHT EYE
     Route: 050
     Dates: start: 20190619, end: 20190717
  10. GLYCERYL TRINITRATE [Concomitant]
     Active Substance: NITROGLYCERIN
     Dosage: USE 1-2 SPRAYS UNDER THE TONGUE
     Route: 060
     Dates: start: 20181017
  11. SPIRONOLACTONE. [Suspect]
     Active Substance: SPIRONOLACTONE
     Indication: PRODUCT USED FOR UNKNOWN INDICATION
     Dates: start: 20190304
  12. DIFFERIN [Concomitant]
     Active Substance: ADAPALENE
     Dosage: APPLY
     Dates: start: 20181017

REACTIONS (2)
  - Malaise [Unknown]
  - Joint swelling [Recovered/Resolved]

NARRATIVE: CASE EVENT DATE: 20190807
